FAERS Safety Report 5591977-X (Version None)
Quarter: 2008Q1

REPORT INFORMATION
  Report Type: 
  Country: None (occurrence: None)
  Receive Date: 20080115
  Receipt Date: 20080108
  Transmission Date: 20080703
  Serious: Yes (Hospitalization, Other)
  Sender: FDA-Public Use
  Company Number: US-ELI_LILLY_AND_COMPANY-US200705003795

PATIENT
  Sex: Female

DRUGS (5)
  1. HUMATROPE [Suspect]
     Indication: GROWTH HORMONE DEFICIENCY
     Dosage: 0.2 MG, DAILY (1/D)
     Dates: start: 20070425, end: 20070511
  2. SYNTHROID [Concomitant]
     Dosage: 0.137 MG, DAILY (1/D)
  3. PREDNISONE TAB [Concomitant]
     Dosage: 5 MG, DAILY (1/D)
  4. OVCON-35 [Concomitant]
     Indication: OESTROGEN REPLACEMENT THERAPY
     Dosage: UNK, UNKNOWN
  5. VITAMIN D [Concomitant]
     Dosage: 50000 IU, OTHER

REACTIONS (3)
  - BRAIN OEDEMA [None]
  - GLIOMA [None]
  - NERVOUS SYSTEM DISORDER [None]
